FAERS Safety Report 5775496-3 (Version None)
Quarter: 2008Q2

REPORT INFORMATION
  Report Type: 
  Country: None (occurrence: None)
  Receive Date: 20080612
  Receipt Date: 20080602
  Transmission Date: 20081010
  Serious: Yes (Hospitalization)
  Sender: FDA-Public Use
  Company Number: 2008-178640-NL

PATIENT
  Age: 20 Year
  Sex: Female

DRUGS (3)
  1. ETONOGESTREL [Suspect]
     Dosage: DF
     Dates: start: 20080408
  2. GARDASIL [Concomitant]
  3. YASMIN [Concomitant]

REACTIONS (5)
  - ECCHYMOSIS [None]
  - ERYTHEMA NODOSUM [None]
  - OEDEMA PERIPHERAL [None]
  - PAIN [None]
  - SKIN NODULE [None]
